FAERS Safety Report 6975810-7 (Version None)
Quarter: 2010Q3

REPORT INFORMATION
  Report Type: 
  Country: None (occurrence: None)
  Receive Date: 20100910
  Receipt Date: 20090409
  Transmission Date: 20110219
  Serious: No
  Sender: FDA-Public Use
  Company Number: US-WYE-H08901109

PATIENT
  Sex: Female

DRUGS (4)
  1. PRISTIQ [Suspect]
     Indication: DEPRESSION
     Route: 048
     Dates: start: 20090301
  2. PRISTIQ [Suspect]
     Indication: ANXIETY
  3. XANAX [Concomitant]
  4. PROVIGIL [Concomitant]

REACTIONS (2)
  - ASTHENIA [None]
  - FATIGUE [None]
